FAERS Safety Report 9859232 (Version 1)
Quarter: 2014Q1

REPORT INFORMATION
  Report Type: Spontaneous
  Country: ES (occurrence: None)
  Receive Date: 20140117
  Receipt Date: 20140117
  Transmission Date: 20141002
  Serious: Yes (Life-Threatening, Hospitalization)
  Sender: FDA-Public Use
  Company Number: GAM-001-14-ES

PATIENT
  Age: 43 Year
  Sex: Female

DRUGS (7)
  1. OCTAGAMOCTA [Suspect]
     Indication: THROMBOTIC THROMBOCYTOPENIC PURPURA
     Route: 042
     Dates: start: 20130308, end: 20130315
  2. CYCLOPHOSPHAMIDE [Concomitant]
  3. CAPTOPRIL AND HYDROCHLOROTHIAZIDE [Concomitant]
  4. SODIUM VALPROATE [Concomitant]
  5. GANCICLOVIR [Concomitant]
  6. METHYLPREDNISOLONE [Concomitant]
  7. ATORVASTATIN [Concomitant]

REACTIONS (3)
  - Acute coronary syndrome [None]
  - Influenza like illness [None]
  - Pancreatitis [None]
